FAERS Safety Report 11097054 (Version 1)
Quarter: 2015Q2

REPORT INFORMATION
  Report Type: Spontaneous
  Country: US (occurrence: None)
  Receive Date: 20150506
  Receipt Date: 20150506
  Transmission Date: 20150821
  Serious: Yes (Hospitalization)
  Sender: FDA-Public Use
  Company Number: None

PATIENT
  Age: 38 Year
  Sex: Female

DRUGS (1)
  1. VENOFER [Suspect]
     Active Substance: IRON SUCROSE
     Indication: IRON DEFICIENCY ANAEMIA
     Dosage: EVERYOTHERDAT X5
     Route: 042

REACTIONS (3)
  - Chest pain [None]
  - Headache [None]
  - Panic attack [None]

NARRATIVE: CASE EVENT DATE: 20150428
